FAERS Safety Report 9813407 (Version 1)
Quarter: 2014Q1

REPORT INFORMATION
  Report Type: Spontaneous
  Country: HR (occurrence: HR)
  Receive Date: 20140113
  Receipt Date: 20140113
  Transmission Date: 20141002
  Serious: Yes (Hospitalization, Other)
  Sender: FDA-Public Use
  Company Number: HR-ACTAVIS-2013-24213

PATIENT
  Age: 53 Year
  Sex: Female

DRUGS (1)
  1. QUETIAPINE (UNKNOWN) [Suspect]
     Indication: PSYCHOTIC DISORDER
     Dosage: 100 MG, DAILY
     Route: 048

REACTIONS (1)
  - Acute generalised exanthematous pustulosis [Recovered/Resolved]
